FAERS Safety Report 7157876-7 (Version None)
Quarter: 2010Q4

REPORT INFORMATION
  Report Type: 
  Country: None (occurrence: None)
  Receive Date: 20101214
  Receipt Date: 20101206
  Transmission Date: 20110411
  Serious: Yes (Other)
  Sender: FDA-Public Use
  Company Number: BR-PFIZER INC-2010153107

PATIENT
  Age: 63 Year
  Sex: Female
  Weight: 49.5 kg

DRUGS (6)
  1. CHAMPIX [Suspect]
     Indication: TOBACCO USER
     Dosage: UNK
     Route: 048
     Dates: start: 20101113
  2. CHAMPIX [Suspect]
     Dosage: 0.5 MG, 2X/DAY (EVERY 12 HOURS)
     Route: 048
  3. TRAZODONE [Concomitant]
     Indication: DEPRESSION
     Dosage: 100 MG, 1X/DAY
     Route: 048
     Dates: start: 20070101
  4. RIVOTRIL [Concomitant]
     Indication: INSOMNIA
     Dosage: 0.5 MG, 1X/DAY
     Route: 048
  5. PURAN T4 [Concomitant]
     Indication: THYROIDECTOMY
     Dosage: 75 UG, 1X/DAY
     Route: 048
     Dates: start: 20020101
  6. MICARDIS [Concomitant]
     Indication: HYPERTENSION
     Dosage: 80 MG, 1X/DAY
     Route: 048
     Dates: start: 20100201

REACTIONS (2)
  - BLOOD PRESSURE INCREASED [None]
  - PAIN IN EXTREMITY [None]
